FAERS Safety Report 13192824 (Version 1)
Quarter: 2017Q1

REPORT INFORMATION
  Report Type: Spontaneous
  Country: US (occurrence: US)
  Receive Date: 20170207
  Receipt Date: 20170207
  Transmission Date: 20170428
  Serious: No
  Sender: FDA-Public Use
  Company Number: US-009507513-1701USA011690

PATIENT
  Sex: Male

DRUGS (5)
  1. EFFEXOR [Suspect]
     Active Substance: VENLAFAXINE HYDROCHLORIDE
  2. NITROSTAT [Suspect]
     Active Substance: NITROGLYCERIN
     Dosage: 1 DF, UNK
     Route: 060
  3. LYRICA [Suspect]
     Active Substance: PREGABALIN
     Dosage: UNK, QD
  4. LIPITOR [Suspect]
     Active Substance: ATORVASTATIN CALCIUM
  5. ZOCOR [Suspect]
     Active Substance: SIMVASTATIN
     Indication: MUSCLE SPASMS

REACTIONS (1)
  - Muscle spasms [Unknown]
